FAERS Safety Report 6356397-9 (Version None)
Quarter: 2009Q3

REPORT INFORMATION
  Report Type: 
  Country: None (occurrence: None)
  Receive Date: 20090915
  Receipt Date: 20090909
  Transmission Date: 20100115
  Serious: Yes (Hospitalization)
  Sender: FDA-Public Use
  Company Number: FR-AVENTIS-200913328FR

PATIENT
  Age: 61 Year
  Sex: Female

DRUGS (2)
  1. TAXOTERE [Suspect]
     Route: 042
     Dates: start: 20090201, end: 20090623
  2. HERCEPTIN [Suspect]
     Route: 042
     Dates: start: 20090201, end: 20090623

REACTIONS (1)
  - FEBRILE BONE MARROW APLASIA [None]
